FAERS Safety Report 22061996 (Version 2)
Quarter: 2024Q3

REPORT INFORMATION
  Report Type: Report from Study
  Country: US (occurrence: US)
  Receive Date: 20230304
  Receipt Date: 20240727
  Transmission Date: 20241017
  Serious: Yes (Hospitalization, Other)
  Sender: NOVARTIS
  Company Number: US-002147023-NVSC2023US047571

PATIENT
  Age: 82 Year
  Sex: Female

DRUGS (1)
  1. ENTRESTO [Suspect]
     Active Substance: SACUBITRIL\VALSARTAN
     Indication: Product used for unknown indication
     Dosage: UNK
     Route: 048

REACTIONS (4)
  - Gastric cancer [Not Recovered/Not Resolved]
  - Uterine cancer [Not Recovered/Not Resolved]
  - Cardiac failure [Unknown]
  - Cough [Recovered/Resolved with Sequelae]

NARRATIVE: CASE EVENT DATE: 20221001
